FAERS Safety Report 17648129 (Version 1)
Quarter: 2020Q2

REPORT INFORMATION
  Report Type: Spontaneous
  Country: US (occurrence: US)
  Receive Date: 20200409
  Receipt Date: 20200409
  Transmission Date: 20200713
  Serious: No
  Sender: FDA-Public Use
  Company Number: US-GLAXOSMITHKLINE-US2020059957

PATIENT
  Sex: Female

DRUGS (1)
  1. ARNUITY ELLIPTA [Suspect]
     Active Substance: FLUTICASONE FUROATE
     Indication: PRODUCT USED FOR UNKNOWN INDICATION
     Dosage: UNK, EVERY 36 HOURS
     Route: 065
     Dates: start: 2019

REACTIONS (4)
  - Wrong technique in device usage process [Unknown]
  - Intentional underdose [Unknown]
  - Off label use [Unknown]
  - Product dose omission [Unknown]
